FAERS Safety Report 5656466-2 (Version None)
Quarter: 2008Q1

REPORT INFORMATION
  Report Type: 
  Country: None (occurrence: None)
  Receive Date: 20080309
  Receipt Date: 20080122
  Transmission Date: 20080703
  Serious: No
  Sender: FDA-Public Use
  Company Number: US-BAYER-200810354BCC

PATIENT
  Age: 59 Year
  Sex: Male
  Weight: 107 kg

DRUGS (8)
  1. ALEVE [Suspect]
     Indication: BACK PAIN
     Dosage: UNIT DOSE: 220 MG
     Route: 048
  2. SAW PALMETTO [Concomitant]
  3. GLUCOSAMINE [Concomitant]
  4. ESTER C [Concomitant]
  5. LYSINE [Concomitant]
  6. ONE SOURCE DAILY [Concomitant]
  7. ASPIRIN [Concomitant]
     Route: 048
  8. ASPIRIN [Concomitant]
     Route: 048

REACTIONS (1)
  - BACK PAIN [None]
